FAERS Safety Report 22122508 (Version 1)
Quarter: 2023Q1

REPORT INFORMATION
  Report Type: Spontaneous
  Country: US (occurrence: US)
  Receive Date: 20230321
  Receipt Date: 20230321
  Transmission Date: 20230417
  Serious: No
  Sender: FDA-Public Use
  Company Number: US-KARYOPHARM-2023KPT000299

PATIENT

DRUGS (20)
  1. XPOVIO [Suspect]
     Active Substance: SELINEXOR
     Indication: Plasma cell myeloma
     Dosage: 100 MG, WEEKLY
     Route: 048
     Dates: start: 20230103
  2. DEXAMETHASONE [Concomitant]
     Active Substance: DEXAMETHASONE
     Dosage: UNK MG
     Route: 048
  3. ACYCLOVIR [Concomitant]
     Active Substance: ACYCLOVIR
     Dosage: UNK MG
     Route: 048
  4. AMLODIPINE BESYLATE [Concomitant]
     Active Substance: AMLODIPINE BESYLATE
     Dosage: UNK MG
  5. ALBUTEROL SULFATE [Concomitant]
     Active Substance: ALBUTEROL SULFATE
  6. ANUSOL HC [Concomitant]
     Active Substance: HYDROCORTISONE
  7. CATHFLO ACTIVASE [Concomitant]
     Active Substance: ALTEPLASE
  8. CELEBREX [Concomitant]
     Active Substance: CELECOXIB
  9. CLONIDINE HYDROCHLORIDE [Concomitant]
     Active Substance: CLONIDINE HYDROCHLORIDE
  10. DEXTROSE [Concomitant]
     Active Substance: DEXTROSE
  11. FAMOTIDINE [Concomitant]
     Active Substance: FAMOTIDINE
  12. FUROSEMIDE [Concomitant]
     Active Substance: FUROSEMIDE
  13. GAMUNEX-C [Concomitant]
     Active Substance: HUMAN IMMUNOGLOBULIN G
  14. KLOR-CON M20 [Concomitant]
     Active Substance: POTASSIUM CHLORIDE
  15. LISINOPRIL [Concomitant]
     Active Substance: LISINOPRIL
  16. OMEPRAZOLE [Concomitant]
     Active Substance: OMEPRAZOLE
  17. POMALYST [Concomitant]
     Active Substance: POMALIDOMIDE
  18. PROCHLORPERAZINE MALEATE [Concomitant]
     Active Substance: PROCHLORPERAZINE MALEATE
  19. SODIUM CHLORIDE [Concomitant]
     Active Substance: SODIUM CHLORIDE
  20. ZOFRAN [Concomitant]
     Active Substance: ONDANSETRON HYDROCHLORIDE

REACTIONS (4)
  - Nausea [Recovering/Resolving]
  - Dizziness [Unknown]
  - Vision blurred [Unknown]
  - Decreased appetite [Unknown]

NARRATIVE: CASE EVENT DATE: 20230101
